FAERS Safety Report 22616459 (Version 1)
Quarter: 2023Q2

REPORT INFORMATION
  Report Type: Spontaneous
  Country: DE (occurrence: None)
  Receive Date: 20230619
  Receipt Date: 20230619
  Transmission Date: 20230721
  Serious: Yes (Hospitalization)
  Sender: FDA-Public Use
  Company Number: 2023A138227

PATIENT
  Age: 84 Year
  Sex: Female

DRUGS (4)
  1. DAPAGLIFLOZIN [Suspect]
     Active Substance: DAPAGLIFLOZIN
     Route: 048
  2. METOPROLOL [Concomitant]
     Active Substance: METOPROLOL
  3. CANDESARTAN [Concomitant]
     Active Substance: CANDESARTAN
  4. FUROSEMIDE [Concomitant]
     Active Substance: FUROSEMIDE

REACTIONS (16)
  - Crush syndrome [Unknown]
  - Renal disorder [Unknown]
  - Rhabdomyolysis [Unknown]
  - Haematoma [Unknown]
  - Cardiac disorder [Unknown]
  - Pulmonary congestion [Unknown]
  - Pneumonia [Unknown]
  - Hypoventilation [Unknown]
  - Respiratory acidosis [Unknown]
  - Hyperglycaemia [Unknown]
  - Hypokalaemia [Unknown]
  - Dermatitis [Unknown]
  - Cystitis [Unknown]
  - Fall [Unknown]
  - Oedema peripheral [Unknown]
  - Stasis dermatitis [Unknown]
